FAERS Safety Report 6637787-3 (Version None)
Quarter: 2010Q1

REPORT INFORMATION
  Report Type: 
  Country: None (occurrence: None)
  Receive Date: 20100315
  Receipt Date: 20100315
  Transmission Date: 20100710
  Serious: Yes (Other)
  Sender: FDA-Public Use
  Company Number: None

PATIENT
  Age: 32 Year
  Sex: Female
  Weight: 63.5036 kg

DRUGS (1)
  1. MIRENA [Suspect]
     Indication: CONTRACEPTION
     Dates: start: 20091009, end: 20091231

REACTIONS (2)
  - DEVICE DISLOCATION [None]
  - MUSCLE SPASMS [None]
